FAERS Safety Report 5020428-9 (Version None)
Quarter: 2006Q2

REPORT INFORMATION
  Report Type: 
  Country: None (occurrence: None)
  Receive Date: 20060606
  Receipt Date: 20060523
  Transmission Date: 20061013
  Serious: Yes (Other)
  Sender: FDA-Public Use
  Company Number: POMP-10726

PATIENT
  Age: 28 Month
  Sex: Female
  Weight: 18 kg

DRUGS (16)
  1. MYOZYME [Suspect]
     Indication: GLYCOGEN STORAGE DISEASE TYPE II
     Dosage: 40 MG/KG Q2WKS IV
     Route: 042
     Dates: start: 20050630
  2. MYOZYME [Suspect]
     Indication: GLYCOGEN STORAGE DISEASE TYPE II
     Dosage: 40 MG/KG QWKS IV
     Route: 042
     Dates: start: 20040209, end: 20050614
  3. MYOZYME [Suspect]
  4. ATROVENT [Concomitant]
  5. XOPENEX [Concomitant]
  6. PULMICORT [Concomitant]
  7. CAPTOPRIL [Concomitant]
  8. ALDACTONE [Concomitant]
  9. LASIX [Concomitant]
  10. COENZYME Q10 [Concomitant]
  11. PREVACID [Concomitant]
  12. REGLAN [Concomitant]
  13. HYDROCOTISONE [Concomitant]
  14. LOTRIMIN [Concomitant]
  15. POLYVISOL WITH IRON [Concomitant]
  16. TYLENOL (CAPLET) [Concomitant]

REACTIONS (6)
  - BLOOD CALCIUM INCREASED [None]
  - CONDITION AGGRAVATED [None]
  - GENERAL PHYSICAL HEALTH DETERIORATION [None]
  - HYPERPARATHYROIDISM [None]
  - PROTEINURIA [None]
  - THERAPY NON-RESPONDER [None]
